FAERS Safety Report 10304698 (Version 1)
Quarter: 2014Q3

REPORT INFORMATION
  Report Type: Spontaneous
  Country: JP (occurrence: None)
  Receive Date: 20140710
  Receipt Date: 20140710
  Transmission Date: 20150326
  Serious: Yes (Other)
  Sender: FDA-Public Use
  Company Number: SYM-2014-22855

PATIENT
  Age: 69 Year
  Sex: Female

DRUGS (1)
  1. TAMBOCOR [Suspect]
     Active Substance: FLECAINIDE ACETATE
     Indication: PRODUCT USED FOR UNKNOWN INDICATION
     Dates: start: 20140327

REACTIONS (5)
  - Rash [None]
  - Hypersensitivity [None]
  - Convulsion [None]
  - Erythema [None]
  - Pain [None]

NARRATIVE: CASE EVENT DATE: 20140328
